FAERS Safety Report 10029291 (Version 5)
Quarter: 2015Q2

REPORT INFORMATION
  Report Type: Spontaneous
  Country: US (occurrence: US)
  Receive Date: 20140321
  Receipt Date: 20150626
  Transmission Date: 20150821
  Serious: Yes (Death, Hospitalization, Other)
  Sender: FDA-Public Use
  Company Number: US-SANOFI-AVENTIS-2012SA066625

PATIENT
  Age: 58 Year
  Sex: Female

DRUGS (3)
  1. PLAVIX [Suspect]
     Active Substance: CLOPIDOGREL BISULFATE
     Indication: ACUTE CORONARY SYNDROME
     Route: 048
     Dates: start: 20070124, end: 20100321
  2. PLAVIX [Suspect]
     Active Substance: CLOPIDOGREL BISULFATE
     Indication: MYOCARDIAL INFARCTION
     Route: 048
     Dates: start: 20070124, end: 20100321
  3. ASPIRIN. [Concomitant]
     Active Substance: ASPIRIN
     Dates: start: 2008

REACTIONS (2)
  - Thrombotic thrombocytopenic purpura [Fatal]
  - Multiple injuries [Unknown]

NARRATIVE: CASE EVENT DATE: 2008
